FAERS Safety Report 7896300-3 (Version None)
Quarter: 2011Q4

REPORT INFORMATION
  Report Type: 
  Country: None (occurrence: None)
  Receive Date: 20111106
  Receipt Date: 20110907
  Transmission Date: 20120403
  Serious: No
  Sender: FDA-Public Use
  Company Number: US-AMGEN-USASP2011045943

PATIENT
  Age: 51 Year
  Sex: Female
  Weight: 58.957 kg

DRUGS (9)
  1. BENADRYL [Concomitant]
     Dosage: 25 MG, UNK
  2. HYDROXYZINE HCL [Concomitant]
     Dosage: 10 MG, UNK
  3. PAROXETINE HCL [Concomitant]
     Dosage: 10 MG, UNK
  4. ENBREL [Suspect]
     Indication: PRODUCT USED FOR UNKNOWN INDICATION
     Dosage: 50 MG, QWK
     Route: 058
  5. FOLIC ACID [Concomitant]
     Dosage: 5 MG, UNK
  6. TYLENOL (CAPLET) [Concomitant]
     Dosage: 650 MG, UNK
  7. METHYLPREDNISOLONE [Concomitant]
     Dosage: 32 MG, UNK
  8. PRILOSEC [Concomitant]
     Dosage: 20 MG, UNK
  9. EPIPEN [Concomitant]
     Dosage: 0.3 MG, UNK

REACTIONS (1)
  - ALOPECIA [None]
